FAERS Safety Report 8601430-4 (Version None)
Quarter: 2012Q3

REPORT INFORMATION
  Report Type: 
  Country: None (occurrence: None)
  Receive Date: 20120817
  Receipt Date: 20110720
  Transmission Date: 20120928
  Serious: No
  Sender: FDA-Public Use
  Company Number: US-BRISTOL-MYERS SQUIBB COMPANY-15913692

PATIENT
  Age: 46 Year
  Sex: Female
  Weight: 104 kg

DRUGS (7)
  1. CALCIUM [Concomitant]
  2. VITAMIN D [Concomitant]
  3. ALENDRONATE SODIUM [Concomitant]
     Indication: OSTEOPOROSIS
  4. LISINOPRIL [Concomitant]
     Indication: BLOOD PRESSURE
  5. SPRYCEL [Suspect]
     Indication: CHRONIC MYELOID LEUKAEMIA
     Dosage: DURATION:ABOUT 5 YEARS
  6. VITAMIN B-12 [Concomitant]
  7. VITAMIN B COMPLEX CAP [Concomitant]

REACTIONS (1)
  - THERAPEUTIC RESPONSE UNEXPECTED [None]
